FAERS Safety Report 9228997 (Version 4)
Quarter: 2013Q3

REPORT INFORMATION
  Report Type: Report from Study
  Country: IE (occurrence: IE)
  Receive Date: 20130412
  Receipt Date: 20130905
  Transmission Date: 20140515
  Serious: No
  Sender: FDA-Public Use
  Company Number: IE-ABBOTT-13P-229-1074066-00

PATIENT
  Age: 22 Year
  Sex: Female

DRUGS (2)
  1. HUMIRA [Suspect]
     Indication: RHEUMATOID ARTHRITIS
     Route: 058
     Dates: start: 20130403
  2. ESCITALOPRAM [Concomitant]
     Indication: PRODUCT USED FOR UNKNOWN INDICATION

REACTIONS (8)
  - Speech disorder [Unknown]
  - Lethargy [Unknown]
  - Hypoaesthesia [Unknown]
  - Rash [Unknown]
  - Headache [Unknown]
  - Paraesthesia [Unknown]
  - Feeling hot [Unknown]
  - Nasal discomfort [Unknown]
